FAERS Safety Report 7888875-5 (Version None)
Quarter: 2011Q4

REPORT INFORMATION
  Report Type: 
  Country: None (occurrence: None)
  Receive Date: 20111101
  Receipt Date: 20111019
  Transmission Date: 20120403
  Serious: Yes (Other)
  Sender: FDA-Public Use
  Company Number: ADR-2011-10764

PATIENT
  Sex: Female

DRUGS (2)
  1. LIORESAL [Suspect]
     Indication: POST LAMINECTOMY SYNDROME
     Dosage: MCG, DAILY, INTRATH
     Route: 037
  2. LIORESAL [Suspect]
     Indication: PAIN
     Dosage: MCG, DAILY, INTRATH
     Route: 037

REACTIONS (7)
  - MUSCLE SPASMS [None]
  - PAIN [None]
  - DEVICE KINK [None]
  - IMPLANT SITE EFFUSION [None]
  - INTRACRANIAL HYPOTENSION [None]
  - IMPLANT SITE SWELLING [None]
  - DEVICE LEAKAGE [None]
